FAERS Safety Report 12158703 (Version 1)
Quarter: 2016Q1

REPORT INFORMATION
  Report Type: Spontaneous
  Country: US (occurrence: US)
  Receive Date: 20160308
  Receipt Date: 20160308
  Transmission Date: 20160526
  Serious: No
  Sender: FDA-Public Use
  Company Number: US-JNJFOC-20160121692

PATIENT
  Age: 86 Year
  Sex: Female
  Weight: 76.66 kg

DRUGS (2)
  1. TYLENOL 8 HR ARTHRITIS PAIN [Suspect]
     Active Substance: ACETAMINOPHEN
     Route: 048
  2. TYLENOL 8 HR ARTHRITIS PAIN [Suspect]
     Active Substance: ACETAMINOPHEN
     Indication: ARTHRALGIA
     Dosage: 1 TABLET EVERY 6 HOURS
     Route: 048
     Dates: start: 20160120

REACTIONS (3)
  - Drug prescribing error [Unknown]
  - Inappropriate schedule of drug administration [Unknown]
  - Underdose [Unknown]

NARRATIVE: CASE EVENT DATE: 20160120
